FAERS Safety Report 21476822 (Version 1)
Quarter: 2022Q4

REPORT INFORMATION
  Report Type: Spontaneous
  Country: US (occurrence: None)
  Receive Date: 20221018
  Receipt Date: 20221018
  Transmission Date: 20230113
  Serious: Yes (Life-Threatening)
  Sender: FDA-Public Use
  Company Number: None

PATIENT
  Age: 67 Year
  Sex: Male
  Weight: 88.90 kg

DRUGS (1)
  1. PACERONE [Suspect]
     Active Substance: AMIODARONE HYDROCHLORIDE
     Indication: Atrial fibrillation
     Dosage: 2 TABS PO QDAY TAB  EVERY DAY PO?
     Route: 048
     Dates: start: 20220619, end: 20220901

REACTIONS (2)
  - Dyspnoea [None]
  - Obstructive airways disorder [None]
